FAERS Safety Report 12450907 (Version 3)
Quarter: 2016Q3

REPORT INFORMATION
  Report Type: Spontaneous
  Country: US (occurrence: US)
  Receive Date: 20160609
  Receipt Date: 20160711
  Transmission Date: 20161109
  Serious: No
  Sender: FDA-Public Use
  Company Number: US-PFIZER INC-2016265124

PATIENT
  Age: 60 Year
  Sex: Female

DRUGS (5)
  1. PERCOCET [Concomitant]
     Active Substance: ACETAMINOPHEN\OXYCODONE HYDROCHLORIDE
     Dosage: UNK
     Dates: start: 2000
  2. BACLOFEN. [Concomitant]
     Active Substance: BACLOFEN
     Dosage: UNK
  3. PROLIA [Concomitant]
     Active Substance: DENOSUMAB
     Dosage: UNK
     Dates: start: 2000
  4. LYRICA [Suspect]
     Active Substance: PREGABALIN
     Indication: PAIN
     Dosage: 150 MG, 2X/DAY
     Dates: start: 2006
  5. OXYMORPHONE [Concomitant]
     Active Substance: OXYMORPHONE
     Dosage: UNK
     Dates: start: 2014

REACTIONS (2)
  - Gait disturbance [Unknown]
  - Intentional product misuse [Unknown]
